FAERS Safety Report 6903189-5 (Version None)
Quarter: 2010Q3

REPORT INFORMATION
  Report Type: 
  Country: None (occurrence: None)
  Receive Date: 20100803
  Receipt Date: 20080708
  Transmission Date: 20110219
  Serious: No
  Sender: FDA-Public Use
  Company Number: US-PFIZER INC-2008056144

PATIENT
  Sex: Female
  Weight: 70.3 kg

DRUGS (13)
  1. LYRICA [Suspect]
     Indication: FIBROMYALGIA
     Route: 048
     Dates: start: 20080516
  2. LYRICA [Suspect]
     Indication: NERVE INJURY
  3. SYNTHROID [Concomitant]
  4. PREMPRO [Concomitant]
  5. NASONEX [Concomitant]
  6. OLOPATADINE [Concomitant]
  7. VALTREX [Concomitant]
  8. ASPIRIN [Concomitant]
  9. TOPROL-XL [Concomitant]
  10. MONTELUKAST SODIUM [Concomitant]
  11. HYDROCHLOROTHIAZIDE [Concomitant]
  12. PREDNISONE [Concomitant]
  13. VAGIFEM [Concomitant]

REACTIONS (8)
  - AMNESIA [None]
  - BALANCE DISORDER [None]
  - GAIT DISTURBANCE [None]
  - GENERAL PHYSICAL CONDITION ABNORMAL [None]
  - PARAESTHESIA [None]
  - UNEVALUABLE EVENT [None]
  - VISION BLURRED [None]
  - VISUAL ACUITY REDUCED [None]
